FAERS Safety Report 17254508 (Version 2)
Quarter: 2020Q1

REPORT INFORMATION
  Report Type: Spontaneous
  Country: US (occurrence: US)
  Receive Date: 20200109
  Receipt Date: 20200225
  Transmission Date: 20200409
  Serious: Yes (Other)
  Sender: FDA-Public Use
  Company Number: US-PFIZER INC-2020008022

PATIENT
  Age: 72 Year
  Sex: Female
  Weight: 76.2 kg

DRUGS (6)
  1. METHIMAZOLE. [Suspect]
     Active Substance: METHIMAZOLE
     Indication: BASEDOW^S DISEASE
     Dosage: 10 MG, DAILY
     Route: 048
     Dates: start: 2018
  2. CRESTOR [Concomitant]
     Active Substance: ROSUVASTATIN CALCIUM
     Indication: BLOOD CHOLESTEROL ABNORMAL
     Dosage: 10 MG, 1X/DAY, (10 MG ONCE A DAY)
  3. SERTRALINE [Concomitant]
     Active Substance: SERTRALINE HYDROCHLORIDE
     Indication: NEURITIS
     Dosage: 50 MG, 1X/DAY, (50 MG ONCE A DAY)
  4. XARELTO [Concomitant]
     Active Substance: RIVAROXABAN
     Indication: HYPERTHYROIDISM
     Dosage: 20 MG, 1X/DAY, (20 MG ONCE A DAY)
  5. METOPROLOL. [Concomitant]
     Active Substance: METOPROLOL
     Indication: HEART RATE ABNORMAL
     Dosage: 25 MG, 1X/DAY, (25 MG ONCE A DAY)
  6. XARELTO [Concomitant]
     Active Substance: RIVAROXABAN
     Indication: ATRIAL FIBRILLATION

REACTIONS (1)
  - Osteonecrosis [Not Recovered/Not Resolved]
